FAERS Safety Report 15766526 (Version 4)
Quarter: 2019Q4

REPORT INFORMATION
  Report Type: Spontaneous
  Country: US (occurrence: US)
  Receive Date: 20181227
  Receipt Date: 20191114
  Transmission Date: 20200122
  Serious: Yes (Other)
  Sender: FDA-Public Use
  Company Number: US-PFIZER INC-2016517656

PATIENT
  Age: 28 Year
  Sex: Female

DRUGS (6)
  1. LYRICA [Suspect]
     Active Substance: PREGABALIN
     Indication: FIBROMYALGIA
     Dosage: 300 MG, 1X/DAY [1-2 HOURS BEFORE BEDTIME]
     Route: 048
  2. CYCLOBENZAPRINE HCL [Concomitant]
     Active Substance: CYCLOBENZAPRINE HYDROCHLORIDE
     Dosage: UNK, AS NEEDED
  3. FAMCICLOVIR. [Concomitant]
     Active Substance: FAMCICLOVIR
     Dosage: 500 MG, TWICE A DAY AS NEEDED
     Route: 048
  4. CYCLOBENZAPRINE HCL [Concomitant]
     Active Substance: CYCLOBENZAPRINE HYDROCHLORIDE
     Dosage: 5 MG, AT BEDTIME
     Route: 048
  5. HYOSCYAMINE SULFATE. [Concomitant]
     Active Substance: HYOSCYAMINE SULFATE
     Dosage: 0.375 MG, ONCE A DAY
     Route: 048
  6. IMITREX [Concomitant]
     Active Substance: SUMATRIPTAN SUCCINATE
     Indication: MIGRAINE
     Dosage: 25 MG, AS NEEDED
     Route: 048

REACTIONS (5)
  - Vitamin D decreased [Unknown]
  - Pneumonia [Unknown]
  - Fatigue [Not Recovered/Not Resolved]
  - Myalgia [Not Recovered/Not Resolved]
  - Blood thyroid stimulating hormone increased [Unknown]
